FAERS Safety Report 11046752 (Version 1)
Quarter: 2015Q2

REPORT INFORMATION
  Report Type: Spontaneous
  Country: DE (occurrence: DE)
  Receive Date: 20150420
  Receipt Date: 20150420
  Transmission Date: 20150821
  Serious: Yes (Hospitalization)
  Sender: FDA-Public Use
  Company Number: DE-ACCORD-030152

PATIENT
  Sex: Male

DRUGS (1)
  1. QUETIAPINE [Suspect]
     Active Substance: QUETIAPINE
     Dosage: EXTENDED-RELEASE
     Route: 064

REACTIONS (5)
  - Transient tachypnoea of the newborn [Recovering/Resolving]
  - Foetal exposure during pregnancy [Unknown]
  - Drug level increased [Recovering/Resolving]
  - Hypotonia [Recovering/Resolving]
  - Hypokinesia [Recovering/Resolving]
